FAERS Safety Report 22203331 (Version 3)
Quarter: 2023Q2

REPORT INFORMATION
  Report Type: Report from Study
  Country: US (occurrence: US)
  Receive Date: 20230412
  Receipt Date: 20230626
  Transmission Date: 20230721
  Serious: Yes (Other)
  Sender: FDA-Public Use
  Company Number: US-BRISTOL-MYERS SQUIBB COMPANY-2023-051298

PATIENT
  Age: 80 Year
  Sex: Female
  Weight: 67.585 kg

DRUGS (10)
  1. CAMZYOS [Suspect]
     Active Substance: MAVACAMTEN
     Indication: Hypertrophic cardiomyopathy
     Dosage: FREQ : DAILY
     Route: 048
     Dates: start: 20230108
  2. CAMZYOS [Suspect]
     Active Substance: MAVACAMTEN
     Dosage: DOSE : 5MG (INITIAL); 2.5MG (CURRENT);     FREQ : QD
     Route: 048
     Dates: start: 2023
  3. CAMZYOS [Suspect]
     Active Substance: MAVACAMTEN
     Dosage: CAMZYOS 5 MG (PATIENT NO LONGER HAS THE 5 MG BOTTLE)
     Route: 048
  4. BISOPROLOL [Concomitant]
     Active Substance: BISOPROLOL
     Indication: Product used for unknown indication
     Dosage: (2 QAM AND 1 QPM; 15 MG/DAY)
  5. SERTRALINE [Concomitant]
     Active Substance: SERTRALINE HYDROCHLORIDE
     Indication: Product used for unknown indication
  6. VITAMINS NOS [Concomitant]
     Active Substance: VITAMINS
     Indication: Product used for unknown indication
  7. ROSUVASTATIN [Concomitant]
     Active Substance: ROSUVASTATIN
     Indication: Product used for unknown indication
  8. PANTOPRAZOLE [Concomitant]
     Active Substance: PANTOPRAZOLE
     Indication: Product used for unknown indication
  9. PLAVIX [Concomitant]
     Active Substance: CLOPIDOGREL BISULFATE
     Indication: Product used for unknown indication
  10. CLOPIDOGREL [Concomitant]
     Active Substance: CLOPIDOGREL BISULFATE
     Indication: Product used for unknown indication

REACTIONS (8)
  - Throat irritation [Unknown]
  - Eye pruritus [Unknown]
  - Nasal pruritus [Unknown]
  - Shock [Unknown]
  - Echocardiogram abnormal [Unknown]
  - Chest discomfort [Unknown]
  - Fatigue [Not Recovered/Not Resolved]
  - Herpes zoster [Unknown]

NARRATIVE: CASE EVENT DATE: 20230414
